FAERS Safety Report 6534800-9 (Version None)
Quarter: 2010Q1

REPORT INFORMATION
  Report Type: 
  Country: None (occurrence: None)
  Receive Date: 20100112
  Receipt Date: 20100104
  Transmission Date: 20100710
  Serious: Yes (Death, Hospitalization, Other)
  Sender: FDA-Public Use
  Company Number: US-BAXTER-2009BH018220

PATIENT
  Age: 70 Year
  Sex: Male

DRUGS (10)
  1. HEPARIN SODIUM INJECTION [Suspect]
     Indication: DRUG USE FOR UNKNOWN INDICATION
     Route: 040
     Dates: start: 20070406, end: 20070406
  2. HEPARIN SODIUM INJECTION [Suspect]
     Route: 041
     Dates: start: 20070406, end: 20070406
  3. HEPARIN SODIUM INJECTION [Suspect]
     Route: 041
     Dates: start: 20070406, end: 20070408
  4. HEPARIN SODIUM INJECTION [Suspect]
     Route: 040
     Dates: start: 20070410, end: 20070410
  5. HEPARIN SODIUM INJECTION [Suspect]
     Route: 040
     Dates: start: 20070406, end: 20070406
  6. HEPARIN SODIUM INJECTION [Suspect]
     Route: 065
     Dates: start: 20070409, end: 20070409
  7. HEPARIN SODIUM INJECTION [Suspect]
     Route: 065
     Dates: start: 20070416, end: 20070420
  8. HEPARIN SODIUM INJECTION [Suspect]
     Route: 065
     Dates: start: 20070412, end: 20070422
  9. VITAMINS [Concomitant]
     Indication: DRUG USE FOR UNKNOWN INDICATION
     Route: 065
  10. ASTHMA INHALER [Concomitant]
     Indication: ASTHMA
     Route: 055

REACTIONS (10)
  - CARDIAC ARREST [None]
  - DEATH [None]
  - EXTREMITY NECROSIS [None]
  - HEPARIN-INDUCED THROMBOCYTOPENIA [None]
  - HYPERSENSITIVITY [None]
  - HYPOTENSION [None]
  - MULTI-ORGAN FAILURE [None]
  - RENAL FAILURE [None]
  - RESPIRATORY FAILURE [None]
  - VOMITING [None]
